FAERS Safety Report 20097495 (Version 1)
Quarter: 2021Q4

REPORT INFORMATION
  Report Type: Spontaneous
  Country: JP (occurrence: JP)
  Receive Date: 20211122
  Receipt Date: 20211122
  Transmission Date: 20220303
  Serious: Yes (Death, Other)
  Sender: FDA-Public Use
  Company Number: JP-OTSUKA-2021_039421

PATIENT
  Age: 15 Year
  Sex: Male

DRUGS (2)
  1. BUSULFEX [Suspect]
     Active Substance: BUSULFAN
     Indication: Stem cell transplant
     Dosage: 12.8MG/KG, UNK
     Route: 065
  2. MELPHALAN [Suspect]
     Active Substance: MELPHALAN
     Indication: Stem cell transplant
     Dosage: 140MG/M2, UNK
     Route: 065

REACTIONS (7)
  - Central nervous system leukaemia [Unknown]
  - Renal failure [Unknown]
  - Device related infection [Fatal]
  - Herpes virus infection [Fatal]
  - Organ failure [Fatal]
  - Viral haemorrhagic cystitis [Unknown]
  - Stomatitis [Unknown]
